FAERS Safety Report 9308169 (Version 1)
Quarter: 2013Q2

REPORT INFORMATION
  Report Type: Spontaneous
  Country: RO (occurrence: RO)
  Receive Date: 20130524
  Receipt Date: 20130524
  Transmission Date: 20140414
  Serious: Yes (Other)
  Sender: FDA-Public Use
  Company Number: RO-ABBOTT-13P-135-1077947-00

PATIENT
  Age: 20 Year
  Sex: Female
  Weight: 45 kg

DRUGS (2)
  1. HUMIRA [Suspect]
     Indication: PSORIASIS
     Route: 058
     Dates: start: 20120227, end: 201303
  2. HUMIRA [Suspect]
     Dates: start: 201305

REACTIONS (2)
  - Abortion spontaneous [Unknown]
  - Vaginal haemorrhage [Unknown]
